FAERS Safety Report 15985405 (Version 1)
Quarter: 2019Q1

REPORT INFORMATION
  Report Type: Spontaneous
  Country: US (occurrence: US)
  Receive Date: 20190220
  Receipt Date: 20190220
  Transmission Date: 20190418
  Serious: No
  Sender: FDA-Public Use
  Company Number: None

PATIENT
  Age: 72 Year
  Sex: Female
  Weight: 61.2 kg

DRUGS (29)
  1. HYDRALAZINE [Concomitant]
     Active Substance: HYDRALAZINE HYDROCHLORIDE
  2. VENTALIN [Concomitant]
  3. TYLENOL WITH CODEINE [Concomitant]
     Active Substance: ACETAMINOPHEN\CODEINE PHOSPHATE
  4. LEVOCETIRIZINE [Concomitant]
     Active Substance: LEVOCETIRIZINE
  5. VITAMIN D3 [Concomitant]
     Active Substance: CHOLECALCIFEROL
  6. FERRATE [Concomitant]
  7. FOLATE [Concomitant]
     Active Substance: FOLATE SODIUM
  8. PRAZOSIN. [Concomitant]
     Active Substance: PRAZOSIN
  9. CAFFEINE (COFFEE) [Concomitant]
  10. HYPSCYAMINE [Concomitant]
  11. PERMETHAZINE [Concomitant]
  12. OMEPRAZOLE. [Concomitant]
     Active Substance: OMEPRAZOLE
  13. MAGNESIUM GLYSONATE [Concomitant]
  14. MONTELKAST [Concomitant]
  15. LEVOTHYROXINE. [Concomitant]
     Active Substance: LEVOTHYROXINE
  16. LOPERAMIDE [Concomitant]
     Active Substance: LOPERAMIDE
  17. FLUTICASONE. [Concomitant]
     Active Substance: FLUTICASONE
  18. VITAMIN B12 [Concomitant]
     Active Substance: CYANOCOBALAMIN
  19. AJOVY [Suspect]
     Active Substance: FREMANEZUMAB-VFRM
     Indication: MIGRAINE
     Dosage: ?          QUANTITY:3 INJECTION(S);OTHER FREQUENCY:ONE TIME;?
     Route: 058
     Dates: start: 20190109, end: 20190109
  20. PHENOBARBITAL. [Concomitant]
     Active Substance: PHENOBARBITAL
  21. LOSARTAN. [Concomitant]
     Active Substance: LOSARTAN
  22. AZELASTINE. [Concomitant]
     Active Substance: AZELASTINE HYDROCHLORIDE
  23. B2 [Concomitant]
  24. DIAZEPAM. [Concomitant]
     Active Substance: DIAZEPAM
  25. SPIRONOLACTONE. [Concomitant]
     Active Substance: SPIRONOLACTONE
  26. OMEGA 3 [Concomitant]
     Active Substance: OMEGA-3 FATTY ACIDS
  27. VITAMIN C [Concomitant]
     Active Substance: ASCORBIC ACID
  28. POLYETHYLENE GLYCOL [Concomitant]
     Active Substance: POLYETHYLENE GLYCOLS
  29. VSL3 [Concomitant]

REACTIONS (2)
  - Pruritus generalised [None]
  - Drug hypersensitivity [None]

NARRATIVE: CASE EVENT DATE: 20190109
